FAERS Safety Report 18958042 (Version 1)
Quarter: 2021Q1

REPORT INFORMATION
  Report Type: Spontaneous
  Country: US (occurrence: US)
  Receive Date: 20210302
  Receipt Date: 20210302
  Transmission Date: 20210420
  Serious: No
  Sender: FDA-Public Use
  Company Number: None

PATIENT
  Age: 47 Year
  Sex: Female

DRUGS (1)
  1. ZARXIO [Suspect]
     Active Substance: FILGRASTIM-SNDZ
     Dosage: ?          OTHER STRENGTH:300MCG/05ML;?
     Route: 058
     Dates: start: 20200219

REACTIONS (2)
  - Neutropenia [None]
  - Product dose omission issue [None]

NARRATIVE: CASE EVENT DATE: 20210302
